FAERS Safety Report 6044467-4 (Version None)
Quarter: 2009Q1

REPORT INFORMATION
  Report Type: 
  Country: None (occurrence: None)
  Receive Date: 20090114
  Receipt Date: 20090114
  Transmission Date: 20090719
  Serious: Yes (Other)
  Sender: FDA-Public Use
  Company Number: None

PATIENT
  Age: 25 Year
  Sex: Male
  Weight: 99.7913 kg

DRUGS (1)
  1. SENSODYNE-F [Suspect]
     Indication: DENTAL CLEANING
     Dosage: UNK/DENTAL
     Route: 004
     Dates: start: 20081224, end: 20081229

REACTIONS (2)
  - FACIAL PALSY [None]
  - TONGUE PARALYSIS [None]
